FAERS Safety Report 9206335 (Version 1)
Quarter: 2013Q2

REPORT INFORMATION
  Report Type: Spontaneous
  Country: CA (occurrence: CA)
  Receive Date: 20130403
  Receipt Date: 20130403
  Transmission Date: 20140414
  Serious: Yes (Death)
  Sender: FDA-Public Use
  Company Number: PHHY2013CA013591

PATIENT
  Age: 64 Year
  Sex: Male

DRUGS (2)
  1. SANDOSTATIN [Suspect]
     Indication: GLUCAGONOMA
     Route: 058
     Dates: start: 20130124, end: 20130124
  2. SANDOSTATIN LAR [Suspect]
     Indication: GLUCAGONOMA
     Dosage: 20 MG, EVERY 4 WEEKS
     Route: 030
     Dates: start: 20130208, end: 20130306

REACTIONS (3)
  - Death [Fatal]
  - Asthenia [Unknown]
  - Rash maculo-papular [Unknown]
